FAERS Safety Report 7252175-7 (Version None)
Quarter: 2011Q1

REPORT INFORMATION
  Report Type: 
  Country: None (occurrence: None)
  Receive Date: 20110129
  Receipt Date: 20100416
  Transmission Date: 20110831
  Serious: No
  Sender: FDA-Public Use
  Company Number: US-ABBOTT-10P-163-0639274-00

PATIENT
  Sex: Male

DRUGS (2)
  1. HUMIRA [Suspect]
     Indication: CROHN'S DISEASE
     Dosage: DAY 15
     Dates: start: 20100331
  2. HUMIRA [Suspect]
     Indication: COLITIS ULCERATIVE

REACTIONS (1)
  - INJECTION SITE DISCOLOURATION [None]
